FAERS Safety Report 25724669 (Version 1)
Quarter: 2025Q3

REPORT INFORMATION
  Report Type: Spontaneous
  Country: US (occurrence: US)
  Receive Date: 20250826
  Receipt Date: 20250826
  Transmission Date: 20251020
  Serious: Yes (Hospitalization)
  Sender: CHEPLAPHARM
  Company Number: None

PATIENT
  Age: 78 Year
  Sex: Male

DRUGS (9)
  1. CAPECITABINE [Interacting]
     Active Substance: CAPECITABINE
     Indication: Squamous cell carcinoma
     Route: 048
  2. CAPECITABINE [Interacting]
     Active Substance: CAPECITABINE
     Indication: Skin cancer
     Route: 048
  3. ESOMEPRAZOLE [Interacting]
     Active Substance: ESOMEPRAZOLE
  4. PAROXETINE [Interacting]
     Active Substance: PAROXETINE
  5. SIMVASTATIN [Interacting]
     Active Substance: SIMVASTATIN
  6. ACYCLOVIR [Concomitant]
     Active Substance: ACYCLOVIR
  7. FLUDARABINE [Concomitant]
     Active Substance: FLUDARABINE PHOSPHATE
     Indication: Chronic lymphocytic leukaemia
  8. CYCLOPHOSPHAMIDE [Concomitant]
     Active Substance: CYCLOPHOSPHAMIDE
     Indication: Chronic lymphocytic leukaemia
  9. RITUXIMAB [Concomitant]
     Active Substance: RITUXIMAB
     Indication: Chronic lymphocytic leukaemia

REACTIONS (4)
  - Meningitis cryptococcal [Not Recovered/Not Resolved]
  - Drug interaction [Unknown]
  - False negative investigation result [Unknown]
  - Off label use [Unknown]
